FAERS Safety Report 4369127-7 (Version None)
Quarter: 2004Q2

REPORT INFORMATION
  Report Type: 
  Country: None (occurrence: None)
  Receive Date: 20040601
  Receipt Date: 20040601
  Transmission Date: 20050107
  Serious: Yes (Hospitalization)
  Sender: FDA-Public Use
  Company Number: None

PATIENT
  Age: 72 Year
  Sex: Male

DRUGS (5)
  1. GATIFLOXACIN [Suspect]
     Dosage: 400 MG QD PO
     Route: 048
     Dates: start: 20040210, end: 20040222
  2. CLINDAMYCIN HCL [Concomitant]
  3. GUAIFENEN WITH CODEINE [Concomitant]
  4. FUROSEMIDE [Concomitant]
  5. LOPRESSOR [Concomitant]

REACTIONS (3)
  - GLYCOSYLATED HAEMOGLOBIN INCREASED [None]
  - HYPOGLYCAEMIA [None]
  - RENAL FAILURE ACUTE [None]
